FAERS Safety Report 18299058 (Version 1)
Quarter: 2020Q3

REPORT INFORMATION
  Report Type: Other
  Country: RO (occurrence: RO)
  Receive Date: 20200923
  Receipt Date: 20200923
  Transmission Date: 20201103
  Serious: Yes (Other)
  Sender: FDA-Public Use
  Company Number: RO-ROCHE-2675059

PATIENT
  Sex: Female
  Weight: 60 kg

DRUGS (1)
  1. HERCEPTIN [Suspect]
     Active Substance: TRASTUZUMAB
     Indication: PRODUCT USED FOR UNKNOWN INDICATION
     Route: 041

REACTIONS (8)
  - Asthenia [Unknown]
  - Deafness [Unknown]
  - Malaise [Unknown]
  - Ageusia [Unknown]
  - Dizziness [Unknown]
  - Decreased appetite [Unknown]
  - Somnolence [Unknown]
  - Dysphagia [Unknown]
